FAERS Safety Report 11205031 (Version 2)
Quarter: 2015Q3

REPORT INFORMATION
  Report Type: Report from Study
  Country: AU (occurrence: AU)
  Receive Date: 20150622
  Receipt Date: 20150707
  Transmission Date: 20151125
  Serious: Yes (Death, Hospitalization, Other)
  Sender: FDA-Public Use
  Company Number: AU-BAYER-2015-271750

PATIENT
  Age: 64 Year
  Sex: Female

DRUGS (5)
  1. STIVARGA [Suspect]
     Active Substance: REGORAFENIB
     Indication: COLORECTAL CANCER METASTATIC
     Dosage: 160 MG FOR 2/52
  2. IRBESARTAN. [Concomitant]
     Active Substance: IRBESARTAN
  3. STIVARGA [Suspect]
     Active Substance: REGORAFENIB
     Indication: COLORECTAL CANCER METASTATIC
     Dosage: 80 MG FOR 2/52
     Dates: start: 20150326
  4. STIVARGA [Suspect]
     Active Substance: REGORAFENIB
     Indication: COLORECTAL CANCER METASTATIC
     Dosage: 120 MG FOR 1/52
  5. HYDROCHLOROTHIAZIDE. [Concomitant]
     Active Substance: HYDROCHLOROTHIAZIDE

REACTIONS (10)
  - Renal failure [None]
  - Dehydration [Fatal]
  - Pyrexia [Fatal]
  - Colorectal cancer metastatic [Fatal]
  - Sepsis [Fatal]
  - Tachycardia [Fatal]
  - Oliguria [Fatal]
  - Hypotension [Fatal]
  - Multi-organ failure [Fatal]
  - Condition aggravated [None]
